FAERS Safety Report 8609043 (Version 7)
Quarter: 2013Q4

REPORT INFORMATION
  Report Type: Report from Study
  Country: US (occurrence: US)
  Receive Date: 20120611
  Receipt Date: 20131209
  Transmission Date: 20140711
  Serious: Yes (Hospitalization)
  Sender: FDA-Public Use
  Company Number: US-ROCHE-1074618

PATIENT
  Age: 48 Year
  Sex: Female
  Weight: 106.3 kg

DRUGS (27)
  1. VEMURAFENIB [Suspect]
     Indication: METASTATIC MALIGNANT MELANOMA
     Dosage: LAST DOSE PRIOR TO SAE: 27/MAY/2012
     Route: 048
     Dates: start: 20120416, end: 20120527
  2. VEMURAFENIB [Interacting]
     Route: 048
     Dates: start: 20120620, end: 20130514
  3. CEFTRIAXONE [Interacting]
     Indication: PRODUCT USED FOR UNKNOWN INDICATION
     Route: 065
     Dates: start: 20120527, end: 20120527
  4. SULFAMETHOXAZOLE/TRIMETHOPRIM [Interacting]
     Indication: PRODUCT USED FOR UNKNOWN INDICATION
     Route: 065
     Dates: start: 20120523, end: 20120527
  5. SULFAMETHOXAZOLE/TRIMETHOPRIM [Interacting]
     Route: 065
     Dates: start: 20120522, end: 20120526
  6. ACETAMINOPHEN [Interacting]
     Indication: PRODUCT USED FOR UNKNOWN INDICATION
     Route: 065
     Dates: start: 20120516, end: 20120517
  7. ACETAMINOPHEN [Interacting]
     Route: 065
     Dates: start: 20120518, end: 20120518
  8. ACETAMINOPHEN [Interacting]
     Route: 065
     Dates: start: 20120519, end: 20120521
  9. ACETAMINOPHEN [Interacting]
     Route: 065
     Dates: start: 20120522, end: 20120522
  10. ACETAMINOPHEN [Interacting]
     Route: 065
     Dates: start: 20120523, end: 20120526
  11. ACETAMINOPHEN [Interacting]
     Route: 065
     Dates: start: 20120527, end: 20120527
  12. ACETAMINOPHEN [Interacting]
     Route: 065
     Dates: start: 20120528, end: 20120530
  13. ACETAMINOPHEN [Interacting]
     Route: 065
     Dates: start: 20120531, end: 20120601
  14. ACETAMINOPHEN [Interacting]
     Route: 065
     Dates: start: 20120628
  15. ACETAMINOPHEN [Interacting]
     Route: 065
     Dates: start: 20120507, end: 20120508
  16. ACETAMINOPHEN [Interacting]
     Route: 065
     Dates: start: 20120509, end: 20120509
  17. ACETAMINOPHEN [Interacting]
     Route: 065
     Dates: start: 20120510, end: 20120510
  18. ACETAMINOPHEN [Interacting]
     Route: 065
     Dates: start: 20120511, end: 20120511
  19. FLAGYL [Interacting]
     Indication: PRODUCT USED FOR UNKNOWN INDICATION
     Route: 065
     Dates: start: 20120527, end: 20120527
  20. DOXYCYCLINE [Interacting]
     Indication: PRODUCT USED FOR UNKNOWN INDICATION
     Route: 065
     Dates: start: 20120527, end: 20120527
  21. BENADRYL (UNITED STATES) [Suspect]
     Indication: PRODUCT USED FOR UNKNOWN INDICATION
     Route: 065
     Dates: start: 20120426
  22. OMEPRAZOLE [Suspect]
     Indication: PRODUCT USED FOR UNKNOWN INDICATION
     Route: 065
     Dates: start: 20120426
  23. MORPHINE [Concomitant]
     Route: 065
     Dates: start: 20120601, end: 20120602
  24. METRONIDAZOLE [Concomitant]
     Route: 042
     Dates: start: 20120527, end: 20120527
  25. LIDOCAINE/EPINEPHRINE [Concomitant]
     Dosage: DAILY DOSE: 1 % 1:100, 000
     Route: 030
     Dates: start: 20120515, end: 20120515
  26. KETOCONAZOLE [Concomitant]
     Route: 061
     Dates: start: 20120515
  27. HYDROCORTISONE [Concomitant]
     Route: 061
     Dates: start: 20120515

REACTIONS (1)
  - Cholestasis [Recovered/Resolved]
